FAERS Safety Report 16138219 (Version 1)
Quarter: 2019Q1

REPORT INFORMATION
  Report Type: Spontaneous
  Country: FR (occurrence: FR)
  Receive Date: 20190330
  Receipt Date: 20190330
  Transmission Date: 20190418
  Serious: Yes (Hospitalization)
  Sender: FDA-Public Use
  Company Number: FR-ACCORD-117027

PATIENT
  Age: 71 Year
  Sex: Male

DRUGS (12)
  1. KLIPAL CODEINE [Concomitant]
     Active Substance: ACETAMINOPHEN\CODEINE PHOSPHATE
     Route: 048
  2. LANTUS [Concomitant]
     Active Substance: INSULIN GLARGINE
     Route: 058
  3. CISPLATIN. [Suspect]
     Active Substance: CISPLATIN
     Indication: LUNG NEOPLASM MALIGNANT
     Route: 042
     Dates: start: 20180530, end: 20180530
  4. NAVELBINE [Concomitant]
     Active Substance: VINORELBINE TARTRATE
     Route: 042
     Dates: start: 20180530, end: 20180607
  5. ELIQUIS [Concomitant]
     Active Substance: APIXABAN
     Route: 048
     Dates: start: 20180608
  6. HUMALOG [Concomitant]
     Active Substance: INSULIN LISPRO
     Route: 058
  7. LASILIX [Concomitant]
     Active Substance: FUROSEMIDE
     Route: 048
  8. PANTOPRAZOLE [Concomitant]
     Active Substance: PANTOPRAZOLE
     Route: 048
  9. ATENOLOL/ATENOLOL HYDROCHLORIDE [Concomitant]
     Route: 048
  10. PERINDOPRIL/PERINDOPRIL ERBUMINE [Concomitant]
     Route: 048
  11. METFORMIN [Concomitant]
     Active Substance: METFORMIN HYDROCHLORIDE
     Route: 048
  12. VOGALENE [Concomitant]
     Active Substance: METOPIMAZINE
     Route: 048

REACTIONS (2)
  - Hyponatraemia [Recovering/Resolving]
  - Acute kidney injury [Recovering/Resolving]

NARRATIVE: CASE EVENT DATE: 20180614
